FAERS Safety Report 11578486 (Version 2)
Quarter: 2015Q4

REPORT INFORMATION
  Report Type: Spontaneous
  Country: HU (occurrence: HU)
  Receive Date: 20150930
  Receipt Date: 20151207
  Transmission Date: 20160304
  Serious: Yes (Other)
  Sender: FDA-Public Use
  Company Number: HU-SA-2015SA147081

PATIENT
  Age: 69 Year
  Sex: Female

DRUGS (4)
  1. CISPLATIN. [Suspect]
     Active Substance: CISPLATIN
     Indication: ADENOCARCINOMA
     Route: 065
  2. XALKORI [Concomitant]
     Active Substance: CRIZOTINIB
     Dates: start: 201303
  3. IRESSA [Concomitant]
     Active Substance: GEFITINIB
     Dates: start: 20140114
  4. TAXOTERE [Suspect]
     Active Substance: DOCETAXEL
     Indication: ADENOCARCINOMA
     Route: 042

REACTIONS (2)
  - Drug ineffective [Unknown]
  - Metastases to bone [Unknown]
